FAERS Safety Report 18220477 (Version 7)
Quarter: 2022Q4

REPORT INFORMATION
  Report Type: Report from Study
  Country: BE (occurrence: BE)
  Receive Date: 20200902
  Receipt Date: 20221130
  Transmission Date: 20230113
  Serious: Yes (Hospitalization)
  Sender: FDA-Public Use
  Company Number: BE-JNJFOC-20200837831

PATIENT
  Age: 67 Year
  Sex: Male
  Weight: 69 kg

DRUGS (1)
  1. IMBRUVICA [Suspect]
     Active Substance: IBRUTINIB
     Indication: Chronic lymphocytic leukaemia
     Route: 048
     Dates: start: 20200516, end: 20200706

REACTIONS (3)
  - Large intestinal obstruction [Recovered/Resolved with Sequelae]
  - Adenocarcinoma of colon [Recovered/Resolved]
  - Colon neoplasm [Recovered/Resolved with Sequelae]

NARRATIVE: CASE EVENT DATE: 20200706
